FAERS Safety Report 17605850 (Version 1)
Quarter: 2020Q1

REPORT INFORMATION
  Report Type: Report from Study
  Country: ES (occurrence: ES)
  Receive Date: 20200331
  Receipt Date: 20200331
  Transmission Date: 20200409
  Serious: Yes (Life-Threatening, Hospitalization)
  Sender: FDA-Public Use
  Company Number: ES-PFIZER INC-2020132748

PATIENT
  Age: 38 Year
  Sex: Male

DRUGS (6)
  1. DIAZEPAM. [Suspect]
     Active Substance: DIAZEPAM
     Dosage: 150 MG, SINGLE
     Route: 048
     Dates: start: 20191013, end: 20191013
  2. QUETIAPIN [Suspect]
     Active Substance: QUETIAPINE
     Dosage: 7.25 MG, SINGLE
     Route: 048
     Dates: start: 20191013, end: 20191013
  3. PREGABALIN. [Suspect]
     Active Substance: PREGABALIN
     Dosage: 6.3 MG, SINGLE
     Route: 048
     Dates: start: 20191013, end: 20191013
  4. METHYLPHENIDATE. [Suspect]
     Active Substance: METHYLPHENIDATE
     Dosage: 100 MG, SINGLE
     Route: 048
     Dates: start: 20191013, end: 20191013
  5. PREGABALIN. [Concomitant]
     Active Substance: PREGABALIN
     Indication: PERSONALITY DISORDER
     Dosage: 150 MG, 1X/DAY
     Route: 048
     Dates: start: 20140310, end: 20191012
  6. QUETIAPIN [Concomitant]
     Active Substance: QUETIAPINE
     Indication: PERSONALITY DISORDER
     Dosage: 25 MG, 1X/DAY
     Route: 048
     Dates: start: 20160530, end: 20191012

REACTIONS (3)
  - Intentional overdose [Recovered/Resolved]
  - Coma [Recovered/Resolved]
  - Respiratory depression [Recovered/Resolved]

NARRATIVE: CASE EVENT DATE: 20191013
